FAERS Safety Report 18795077 (Version 1)
Quarter: 2021Q1

REPORT INFORMATION
  Report Type: Spontaneous
  Country: US (occurrence: US)
  Receive Date: 20210127
  Receipt Date: 20210127
  Transmission Date: 20210419
  Serious: Yes (Other)
  Sender: FDA-Public Use
  Company Number: US-GLAXOSMITHKLINE-US2020AMR261125

PATIENT
  Sex: Male

DRUGS (2)
  1. LEVETIRACETAM. [Suspect]
     Active Substance: LEVETIRACETAM
     Indication: SEIZURE PROPHYLAXIS
     Dosage: UNK
  2. LAMOTRIGINE. [Suspect]
     Active Substance: LAMOTRIGINE
     Indication: SEIZURE
     Dosage: 1 DF, BID
     Dates: start: 2019

REACTIONS (7)
  - Anger [Unknown]
  - Condition aggravated [Unknown]
  - Adverse drug reaction [Unknown]
  - Depression [Unknown]
  - Fatigue [Unknown]
  - Seizure [Unknown]
  - Amnesia [Unknown]
